FAERS Safety Report 14222399 (Version 2)
Quarter: 2017Q4

REPORT INFORMATION
  Report Type: Spontaneous
  Country: IT (occurrence: IT)
  Receive Date: 20171124
  Receipt Date: 20171212
  Transmission Date: 20180321
  Serious: Yes (Other)
  Sender: FDA-Public Use
  Company Number: IT-AUROBINDO-AUR-APL-2017-43594

PATIENT
  Age: 45 Year
  Sex: Female

DRUGS (1)
  1. ARIPIPRAZOLE AUROBINDO TABLETS 15MG [Suspect]
     Active Substance: ARIPIPRAZOLE
     Indication: BIPOLAR DISORDER
     Dosage: 15 MG, DAILY
     Route: 048
     Dates: start: 20170108, end: 20170109

REACTIONS (1)
  - Hypertensive crisis [Recovered/Resolved]

NARRATIVE: CASE EVENT DATE: 20170927
